FAERS Safety Report 16497977 (Version 1)
Quarter: 2019Q2

REPORT INFORMATION
  Report Type: Spontaneous
  Country: CA (occurrence: CA)
  Receive Date: 20190628
  Receipt Date: 20190628
  Transmission Date: 20190711
  Serious: Yes (Other)
  Sender: FDA-Public Use
  Company Number: CA-TEVA-2019-CA-1069776

PATIENT
  Age: 43 Year
  Sex: Female

DRUGS (7)
  1. OLMESARTAN [Concomitant]
     Active Substance: OLMESARTAN
  2. SPIRONOLACTONE. [Concomitant]
     Active Substance: SPIRONOLACTONE
  3. VENLAFAXINE HYDROCHLORIDE. [Concomitant]
     Active Substance: VENLAFAXINE HYDROCHLORIDE
  4. BUPROPION. [Concomitant]
     Active Substance: BUPROPION
  5. CLONAZEPAM. [Concomitant]
     Active Substance: CLONAZEPAM
  6. DILTIAZEM. [Concomitant]
     Active Substance: DILTIAZEM
  7. FLUCONAZOLE. [Suspect]
     Active Substance: FLUCONAZOLE
     Dosage: 50 MILLIGRAM DAILY;
     Route: 048

REACTIONS (7)
  - Blood pH decreased [Unknown]
  - Drug dispensed to wrong patient [Unknown]
  - Peripheral swelling [Unknown]
  - Product dispensing error [Unknown]
  - Cardiac flutter [Unknown]
  - Blood pressure abnormal [Unknown]
  - Malaise [Unknown]
